FAERS Safety Report 7969484 (Version 4)
Quarter: 2013Q1

REPORT INFORMATION
  Report Type: Report from Study
  Country: CA (occurrence: CA)
  Receive Date: 20110601
  Receipt Date: 20130301
  Transmission Date: 20140127
  Serious: Yes (Death, Life-Threatening, Other)
  Sender: FDA-Public Use
  Company Number: PHHY2011CA43523

PATIENT
  Age: 50 None
  Sex: Male

DRUGS (4)
  1. CLOZARIL [Suspect]
     Indication: SCHIZOPHRENIA
     Dosage: 500 MG, UNK
     Route: 048
     Dates: start: 19990618
  2. EPIVAL [Concomitant]
     Dosage: UNK UKN, UNK
  3. RISPERIDONE [Concomitant]
     Dosage: UNK UKN, UNK
  4. CITALOPRAM [Concomitant]
     Dosage: UNK UKN, UNK

REACTIONS (4)
  - Acute myeloid leukaemia [Fatal]
  - Agranulocytosis [Unknown]
  - Neutrophil count decreased [Unknown]
  - White blood cell count decreased [Unknown]
